FAERS Safety Report 5442010-1 (Version None)
Quarter: 2007Q3

REPORT INFORMATION
  Report Type: 
  Country: None (occurrence: None)
  Receive Date: 20070829
  Receipt Date: 20070821
  Transmission Date: 20080115
  Serious: Yes (Other)
  Sender: FDA-Public Use
  Company Number: 2007EN000205

PATIENT
  Age: 8 Year
  Sex: Female

DRUGS (1)
  1. OPANA [Suspect]
     Dosage: X1;PO
     Route: 048
     Dates: start: 20070330, end: 20070330

REACTIONS (1)
  - ACCIDENTAL DRUG INTAKE BY CHILD [None]
